FAERS Safety Report 9134667 (Version 1)
Quarter: 2013Q1

REPORT INFORMATION
  Report Type: Spontaneous
  Country: US (occurrence: US)
  Receive Date: 20130304
  Receipt Date: 20130304
  Transmission Date: 20140127
  Serious: Yes (Hospitalization, Other)
  Sender: FDA-Public Use
  Company Number: US-BAYER-2013-021176

PATIENT
  Age: 79 Year
  Sex: Male
  Weight: 108.86 kg

DRUGS (3)
  1. XARELTO [Suspect]
     Indication: ATRIAL FIBRILLATION
     Dosage: 20 MG, QD
     Route: 048
     Dates: start: 201209, end: 20130120
  2. XARELTO [Interacting]
     Indication: CEREBROVASCULAR ACCIDENT PROPHYLAXIS
  3. ACETYLSALICYLIC ACID({=100 MG) [Interacting]
     Indication: ANTIPLATELET THERAPY
     Dosage: 81 MG, UNK
     Route: 065

REACTIONS (6)
  - Hepatic cancer [Unknown]
  - Lung neoplasm malignant [Unknown]
  - Haemoglobin decreased [Recovering/Resolving]
  - Feeling cold [Unknown]
  - Oesophageal haemorrhage [Recovering/Resolving]
  - Oesophageal adenocarcinoma [Unknown]
